FAERS Safety Report 11333027 (Version 1)
Quarter: 2015Q3

REPORT INFORMATION
  Report Type: Spontaneous
  Country: US (occurrence: US)
  Receive Date: 20150803
  Receipt Date: 20150803
  Transmission Date: 20151125
  Serious: Yes (Other)
  Sender: FDA-Public Use
  Company Number: US-ELI_LILLY_AND_COMPANY-US200707005234

PATIENT
  Sex: Male
  Weight: 63.49 kg

DRUGS (3)
  1. SEROQUEL [Concomitant]
     Active Substance: QUETIAPINE FUMARATE
     Dates: start: 2000
  2. RISPERDAL [Concomitant]
     Active Substance: RISPERIDONE
     Dates: start: 2000, end: 2005
  3. OLANZAPINE. [Suspect]
     Active Substance: OLANZAPINE
     Dates: start: 2000, end: 2005

REACTIONS (3)
  - Weight increased [Unknown]
  - Type 2 diabetes mellitus [Not Recovered/Not Resolved]
  - Diabetic coma [Unknown]
